FAERS Safety Report 7681712-3 (Version None)
Quarter: 2011Q3

REPORT INFORMATION
  Report Type: 
  Country: None (occurrence: None)
  Receive Date: 20110812
  Receipt Date: 20110728
  Transmission Date: 20111222
  Serious: Yes (Hospitalization)
  Sender: FDA-Public Use
  Company Number: FI-WATSON-2011-12567

PATIENT
  Age: 60 Year
  Sex: Female

DRUGS (2)
  1. RISEDRONATE SODIUM [Suspect]
     Indication: OSTEOPENIA
     Dosage: 35 MG, 1/WEEK
     Dates: start: 20040101
  2. PREDNISOLONE [Suspect]
     Indication: ANKYLOSING SPONDYLITIS
     Dosage: 5 MG, DAILY, MORE THAN 10 YEARS

REACTIONS (2)
  - BONE DISORDER [None]
  - FEMUR FRACTURE [None]
